FAERS Safety Report 18095912 (Version 1)
Quarter: 2020Q3

REPORT INFORMATION
  Report Type: Spontaneous
  Country: GB (occurrence: GB)
  Receive Date: 20200731
  Receipt Date: 20200731
  Transmission Date: 20201103
  Serious: Yes (Other)
  Sender: FDA-Public Use
  Company Number: GB-PFIZER INC-2020286544

PATIENT
  Sex: Male

DRUGS (2)
  1. FLUCONAZOLE. [Suspect]
     Active Substance: FLUCONAZOLE
     Indication: CANDIDA INFECTION
     Dosage: UNK
     Route: 065
  2. LONSURF [Suspect]
     Active Substance: TIPIRACIL HYDROCHLORIDE\TRIFLURIDINE
     Dosage: UNK
     Route: 065

REACTIONS (4)
  - Dizziness [Unknown]
  - Hyperglycaemia [Unknown]
  - Candida infection [Unknown]
  - Confusional state [Unknown]

NARRATIVE: CASE EVENT DATE: 2020
